FAERS Safety Report 8248190-7 (Version None)
Quarter: 2012Q1

REPORT INFORMATION
  Report Type: 
  Country: None (occurrence: None)
  Receive Date: 20120330
  Receipt Date: 20120321
  Transmission Date: 20120608
  Serious: Yes (Other)
  Sender: FDA-Public Use
  Company Number: US-VERTEX PHARMACEUTICALS INC.-AE-2012-004156

PATIENT
  Sex: Female

DRUGS (3)
  1. RIBAVIRIN [Concomitant]
     Indication: HEPATITIS C
     Dates: start: 20111228, end: 20120301
  2. INCIVEK [Suspect]
     Indication: HEPATITIS C
     Route: 048
     Dates: start: 20111228, end: 20120305
  3. PEGASYS [Concomitant]
     Indication: HEPATITIS C
     Dates: start: 20111228, end: 20120301

REACTIONS (4)
  - OEDEMA PERIPHERAL [None]
  - SKIN EXFOLIATION [None]
  - RASH GENERALISED [None]
  - PAIN IN EXTREMITY [None]
